FAERS Safety Report 9780802 (Version 2)
Quarter: 2013Q4

REPORT INFORMATION
  Report Type: Spontaneous
  Country: SE (occurrence: SE)
  Receive Date: 20131224
  Receipt Date: 20131230
  Transmission Date: 20140711
  Serious: Yes (Life-Threatening, Hospitalization)
  Sender: FDA-Public Use
  Company Number: SE-SA-2013SA132194

PATIENT
  Age: 68 Year
  Sex: Male

DRUGS (10)
  1. JEVTANA [Suspect]
     Indication: PROSTATE CANCER
     Route: 065
     Dates: start: 20130807, end: 20131111
  2. ANDROCUR [Concomitant]
  3. OMEPRAZOLE [Concomitant]
  4. PREDNISOLONE [Concomitant]
  5. PRIMPERAN [Concomitant]
  6. INNOHEP [Concomitant]
  7. SODIUM PICOSULFATE [Concomitant]
  8. LOPERAMIDE [Concomitant]
  9. CAVERJECT [Concomitant]
  10. FURIX [Concomitant]

REACTIONS (2)
  - Disseminated intravascular coagulation [Recovered/Resolved]
  - Haematuria [Recovered/Resolved]
